FAERS Safety Report 8958590 (Version 3)
Quarter: 2013Q3

REPORT INFORMATION
  Report Type: Spontaneous
  Country: US (occurrence: None)
  Receive Date: 20121203
  Receipt Date: 20130916
  Transmission Date: 20140515
  Serious: Yes (Hospitalization, Other)
  Sender: FDA-Public Use
  Company Number: JPI-P-026429

PATIENT
  Age: 27 Year
  Sex: Male
  Weight: 77.11 kg

DRUGS (2)
  1. XYREM (500 MILLIGRAM/MILLILITERS, SOLUTION) (SODIUM OXYBATE) [Suspect]
     Indication: NARCOLEPSY
     Route: 048
     Dates: end: 20121107
  2. LORAZEPAM [Suspect]
     Indication: ANXIETY

REACTIONS (11)
  - Drug dependence [None]
  - Alcohol abuse [None]
  - Drug abuse [None]
  - Anxiety [None]
  - Middle insomnia [None]
  - Poor quality sleep [None]
  - Suicidal ideation [None]
  - Thinking abnormal [None]
  - Depression [None]
  - Hyperhidrosis [None]
  - Therapeutic response decreased [None]
